FAERS Safety Report 4505458-5 (Version None)
Quarter: 2004Q4

REPORT INFORMATION
  Report Type: 
  Country: None (occurrence: None)
  Receive Date: 20041118
  Receipt Date: 20041118
  Transmission Date: 20050328
  Serious: Yes (Other)
  Sender: FDA-Public Use
  Company Number: None

PATIENT
  Age: 55 Year
  Sex: Female
  Weight: 54.4316 kg

DRUGS (2)
  1. ACTONEL [Suspect]
     Indication: OSTEOPOROSIS
     Dosage: 1  1 TIME PER WEEK  ORAL
     Route: 048
     Dates: start: 20030615, end: 20040615
  2. PROZAC [Concomitant]

REACTIONS (1)
  - BREAST CANCER [None]
